FAERS Safety Report 7372251-8 (Version None)
Quarter: 2011Q1

REPORT INFORMATION
  Report Type: 
  Country: None (occurrence: None)
  Receive Date: 20110324
  Receipt Date: 20110316
  Transmission Date: 20110831
  Serious: Yes (Death, Hospitalization)
  Sender: FDA-Public Use
  Company Number: A0886506A

PATIENT
  Age: 79 Year
  Sex: Female
  Weight: 4.5 kg

DRUGS (7)
  1. MAVIK [Concomitant]
  2. LIPITOR [Concomitant]
  3. AMARYL [Concomitant]
  4. SYNTHROID [Concomitant]
  5. ALLOPURINOL [Concomitant]
  6. AVANDIA [Suspect]
     Dosage: 8MG PER DAY
     Route: 048
     Dates: start: 20000329, end: 20060511
  7. LOZOL [Concomitant]

REACTIONS (4)
  - MYOCARDIAL INFARCTION [None]
  - MYOCARDIAL ISCHAEMIA [None]
  - CARDIAC FAILURE CONGESTIVE [None]
  - STENT PLACEMENT [None]
